FAERS Safety Report 23045814 (Version 2)
Quarter: 2023Q4

REPORT INFORMATION
  Report Type: Spontaneous
  Country: US (occurrence: US)
  Receive Date: 20231009
  Receipt Date: 20231120
  Transmission Date: 20240110
  Serious: Yes (Other)
  Sender: FDA-Public Use
  Company Number: US-PFIZER INC-PV202300163325

PATIENT
  Age: 63 Year
  Sex: Female

DRUGS (1)
  1. ESTRING [Suspect]
     Active Substance: ESTRADIOL
     Dosage: DELIVERS 7.5MCG PER DAY, PRESCRIBED EVERY 3 MONTHS
     Route: 067
     Dates: start: 20230901, end: 202309

REACTIONS (7)
  - Vulvovaginal burning sensation [Recovering/Resolving]
  - Vulvovaginal pruritus [Recovering/Resolving]
  - Genitourinary tract infection [Unknown]
  - Vulvovaginal dryness [Unknown]
  - Vulvovaginal erythema [Unknown]
  - Vulvovaginal pain [Unknown]
  - Device delivery system issue [Unknown]

NARRATIVE: CASE EVENT DATE: 20230901
